FAERS Safety Report 7924475-6 (Version None)
Quarter: 2011Q4

REPORT INFORMATION
  Report Type: 
  Country: None (occurrence: None)
  Receive Date: 20111117
  Receipt Date: 20110322
  Transmission Date: 20120403
  Serious: No
  Sender: FDA-Public Use
  Company Number: US-AMGEN-USASP2011015519

PATIENT
  Age: 14 Year
  Sex: Female

DRUGS (4)
  1. METHOTREXATE [Concomitant]
  2. NAPROXEN [Concomitant]
  3. SULFASALAZINE [Concomitant]
  4. ENBREL [Suspect]
     Indication: JUVENILE ARTHRITIS
     Dosage: 25 MG, QWK
     Dates: start: 20070501, end: 20100401

REACTIONS (5)
  - ARTHRALGIA [None]
  - JUVENILE ARTHRITIS [None]
  - JOINT RANGE OF MOTION DECREASED [None]
  - JOINT STIFFNESS [None]
  - SYNOVIAL DISORDER [None]
